FAERS Safety Report 19674961 (Version 1)
Quarter: 2021Q3

REPORT INFORMATION
  Report Type: Spontaneous
  Country: US (occurrence: US)
  Receive Date: 20210809
  Receipt Date: 20210809
  Transmission Date: 20211014
  Serious: No
  Sender: FDA-Public Use
  Company Number: US-AMGEN-USASP2021118859

PATIENT
  Age: 60 Year
  Sex: Female

DRUGS (39)
  1. OTEZLA [Suspect]
     Active Substance: APREMILAST
     Indication: PRODUCT USED FOR UNKNOWN INDICATION
     Dosage: 30 MILLIGRAM, BID
     Route: 065
  2. DUPILUMAB [Suspect]
     Active Substance: DUPILUMAB
     Indication: ASTHMA
     Dosage: 400 MILLIGRAM
     Route: 058
     Dates: start: 20190520, end: 20190520
  3. ISOPRENALINE HYDROCHLORIDE [Concomitant]
     Active Substance: ISOPROTERENOL HYDROCHLORIDE
  4. BENICAR [Concomitant]
     Active Substance: OLMESARTAN MEDOXOMIL
  5. FISH OIL [Concomitant]
     Active Substance: FISH OIL
  6. OLUX [Concomitant]
     Active Substance: CLOBETASOL PROPIONATE
  7. PREVACID [Concomitant]
     Active Substance: LANSOPRAZOLE
  8. PHENYLEPHRINE BITARTRATE [Concomitant]
     Active Substance: PHENYLEPHRINE BITARTRATE
  9. ALLEGRA [Concomitant]
     Active Substance: FEXOFENADINE HYDROCHLORIDE
  10. AMITRIPTYLINE [Concomitant]
     Active Substance: AMITRIPTYLINE
  11. CBD OIL [Concomitant]
     Active Substance: CANNABIDIOL\HERBALS
  12. LEUCOVORIN CALCIUM. [Concomitant]
     Active Substance: LEUCOVORIN CALCIUM
  13. METOPROLOL. [Concomitant]
     Active Substance: METOPROLOL
  14. VITAMIN C [Concomitant]
     Active Substance: ASCORBIC ACID
  15. ZOCOR [Concomitant]
     Active Substance: SIMVASTATIN
  16. CALCIUM [Concomitant]
     Active Substance: CALCIUM
  17. ZINC. [Concomitant]
     Active Substance: ZINC
  18. RELPAX [Concomitant]
     Active Substance: ELETRIPTAN HYDROBROMIDE
  19. FLUTICASONE PROPIONATE. [Concomitant]
     Active Substance: FLUTICASONE PROPIONATE
  20. ASPIRIN [ACETYLSALICYLIC ACID] [Concomitant]
     Active Substance: ASPIRIN
  21. METHOTREXATE. [Concomitant]
     Active Substance: METHOTREXATE
  22. NASONEX [Concomitant]
     Active Substance: MOMETASONE FUROATE
  23. ZANTAC [Concomitant]
     Active Substance: RANITIDINE HYDROCHLORIDE
  24. BETAMETHASONE DIPROPIONATE. [Concomitant]
     Active Substance: BETAMETHASONE DIPROPIONATE
  25. VITAMIN B5 [PANTOTHENIC ACID] [Concomitant]
  26. VITAMIN D3 [Concomitant]
     Active Substance: CHOLECALCIFEROL
  27. SALMETEROL XINAFOATE [Concomitant]
     Active Substance: SALMETEROL XINAFOATE
  28. FLUDROXYCORTIDE [Concomitant]
     Active Substance: FLURANDRENOLIDE
  29. GLYCEROL [Concomitant]
     Active Substance: GLYCERIN
  30. KELUAMID [Concomitant]
  31. PIROCTONE ETHANOLAMINE [Concomitant]
  32. PLAQUENIL [Concomitant]
     Active Substance: HYDROXYCHLOROQUINE SULFATE
  33. PROBIOTIC [BIFIDOBACTERIUM LACTIS] [Concomitant]
     Active Substance: BIFIDOBACTERIUM ANIMALIS LACTIS
  34. PARAFFIN, LIQUID;PRUNUS DULCIS OIL [Concomitant]
  35. KELUAL DS [GLYCEROL;KELUAMID;PIROCTONE ETHANOLAMINE;ZINC GLUCONATE] [Concomitant]
  36. TACLONEX [Concomitant]
     Active Substance: BETAMETHASONE DIPROPIONATE\CALCIPOTRIENE\CALCIPOTRIENE HYDRATE
  37. TYLENOL [Concomitant]
     Active Substance: ACETAMINOPHEN
  38. CYMBALTA [Concomitant]
     Active Substance: DULOXETINE HYDROCHLORIDE
  39. SINGULAIR [Concomitant]
     Active Substance: MONTELUKAST SODIUM

REACTIONS (1)
  - Eczema [Recovered/Resolved]

NARRATIVE: CASE EVENT DATE: 2019
